FAERS Safety Report 20809150 (Version 1)
Quarter: 2022Q2

REPORT INFORMATION
  Report Type: Spontaneous
  Country: BG (occurrence: None)
  Receive Date: 20220510
  Receipt Date: 20220510
  Transmission Date: 20220720
  Serious: Yes (Death, Hospitalization)
  Sender: FDA-Public Use
  Company Number: 2022A176558

PATIENT
  Age: 68 Year
  Sex: Female
  Weight: 76 kg

DRUGS (4)
  1. FULVESTRANT [Suspect]
     Active Substance: FULVESTRANT
     Indication: Breast cancer
     Dosage: 500 MILLIGRAM, QD
     Route: 030
     Dates: start: 20220221
  2. XGEVA [Suspect]
     Active Substance: DENOSUMAB
     Indication: Metastases to bone
     Dosage: 4 MILLIGRAM, QMO
     Route: 058
     Dates: start: 20220228
  3. ISOPTIN [Concomitant]
     Active Substance: VERAPAMIL HYDROCHLORIDE
     Route: 065
  4. NEOPAMID [Concomitant]
     Dosage: UNK
     Route: 065
     Dates: start: 2020, end: 20220305

REACTIONS (1)
  - Gastrointestinal bacterial infection [Fatal]

NARRATIVE: CASE EVENT DATE: 20220305
